FAERS Safety Report 26066535 (Version 1)
Quarter: 2025Q4

REPORT INFORMATION
  Report Type: Spontaneous
  Country: US (occurrence: US)
  Receive Date: 20251119
  Receipt Date: 20251119
  Transmission Date: 20260118
  Serious: No
  Sender: NOVO NORDISK
  Company Number: US-NOVOPROD-1400401

PATIENT
  Age: 86 Year

DRUGS (1)
  1. NOVOLOG [Suspect]
     Active Substance: INSULIN ASPART
     Indication: Type 2 diabetes mellitus
     Dosage: 6-10 UNITS AS NEEDED
     Route: 058
     Dates: start: 2015

REACTIONS (1)
  - Visual impairment [Unknown]

NARRATIVE: CASE EVENT DATE: 20220101
